FAERS Safety Report 9645082 (Version 1)
Quarter: 2013Q4

REPORT INFORMATION
  Report Type: Spontaneous
  Country: AU (occurrence: AU)
  Receive Date: 20131025
  Receipt Date: 20131025
  Transmission Date: 20140711
  Serious: Yes (Other)
  Sender: FDA-Public Use
  Company Number: AU-SA-2013SA104846

PATIENT
  Age: 71 Year
  Sex: Male

DRUGS (1)
  1. JEVTANA [Suspect]
     Indication: PROSTATE CANCER METASTATIC
     Route: 042
     Dates: start: 20130201

REACTIONS (2)
  - Haemorrhage urinary tract [Not Recovered/Not Resolved]
  - Diarrhoea [Not Recovered/Not Resolved]
